FAERS Safety Report 4832666-6 (Version None)
Quarter: 2005Q4

REPORT INFORMATION
  Report Type: 
  Country: None (occurrence: None)
  Receive Date: 20051117
  Receipt Date: 20051103
  Transmission Date: 20060501
  Serious: Yes (Death, Hospitalization, Other)
  Sender: FDA-Public Use
  Company Number: 2005-DE-04571GD

PATIENT
  Age: 66 Year
  Sex: Male

DRUGS (2)
  1. MORPHINE [Suspect]
     Indication: BACK PAIN
     Dosage: 60 MG EXTENDED RELEASE MORPHINE
  2. MORPHINE [Suspect]
     Indication: BONE PAIN
     Dosage: 60 MG EXTENDED RELEASE MORPHINE

REACTIONS (6)
  - COMPRESSION FRACTURE [None]
  - MALIGNANT NEOPLASM PROGRESSION [None]
  - METASTASES TO SPINE [None]
  - PATHOLOGICAL FRACTURE [None]
  - SALIVARY GLAND CANCER [None]
  - THROMBOCYTOPENIA [None]
